FAERS Safety Report 24334327 (Version 1)
Quarter: 2024Q3

REPORT INFORMATION
  Report Type: Spontaneous
  Country: US (occurrence: US)
  Receive Date: 20240918
  Receipt Date: 20240918
  Transmission Date: 20241016
  Serious: Yes (Other)
  Sender: ALEXION PHARMACEUTICALS
  Company Number: US-AstraZeneca-CH-00707456AP

PATIENT
  Sex: Male
  Weight: 92.971 kg

DRUGS (2)
  1. VOYDEYA [Suspect]
     Active Substance: DANICOPAN
     Indication: Paroxysmal nocturnal haemoglobinuria
     Dosage: 200 MILLIGRAM, TID
     Route: 048
     Dates: start: 202405
  2. ULTOMIRIS [Suspect]
     Active Substance: RAVULIZUMAB-CWVZ
     Indication: Paroxysmal nocturnal haemoglobinuria
     Route: 048

REACTIONS (3)
  - Paroxysmal nocturnal haemoglobinuria [Unknown]
  - Disease progression [Unknown]
  - Drug ineffective [Not Recovered/Not Resolved]
